FAERS Safety Report 7003196-0 (Version None)
Quarter: 2010Q3

REPORT INFORMATION
  Report Type: 
  Country: None (occurrence: None)
  Receive Date: 20100920
  Receipt Date: 20100323
  Transmission Date: 20110219
  Serious: No
  Sender: FDA-Public Use
  Company Number: US-ASTRAZENECA-2010SE12953

PATIENT
  Sex: Male
  Weight: 86.2 kg

DRUGS (4)
  1. SEROQUEL [Suspect]
     Indication: SCHIZOPHRENIA
     Route: 048
     Dates: start: 20100301
  2. HALDOL [Concomitant]
     Indication: SCHIZOPHRENIA
     Route: 050
  3. PRAMIPEXOLE [Concomitant]
  4. CLONAZEPAM [Concomitant]

REACTIONS (5)
  - DELUSION [None]
  - IMPATIENCE [None]
  - POOR PERSONAL HYGIENE [None]
  - SEDATION [None]
  - TARDIVE DYSKINESIA [None]
